FAERS Safety Report 19618075 (Version 1)
Quarter: 2021Q3

REPORT INFORMATION
  Report Type: Spontaneous
  Country: KR (occurrence: KR)
  Receive Date: 20210727
  Receipt Date: 20210727
  Transmission Date: 20211014
  Serious: Yes (Hospitalization, Other)
  Sender: FDA-Public Use
  Company Number: KR-TAKEDA-2021TUS046522

PATIENT
  Sex: Female

DRUGS (2)
  1. THALIDOMIDE [Concomitant]
     Active Substance: THALIDOMIDE
     Dosage: UNK
  2. VELCADE [Suspect]
     Active Substance: BORTEZOMIB
     Indication: AMYLOIDOSIS
     Dosage: UNK
     Route: 065

REACTIONS (2)
  - Urinary retention [Unknown]
  - Blood pressure decreased [Unknown]
